FAERS Safety Report 9630969 (Version 2)
Quarter: 2013Q4

REPORT INFORMATION
  Report Type: Spontaneous
  Country: BR (occurrence: BR)
  Receive Date: 20131018
  Receipt Date: 20131114
  Transmission Date: 20140711
  Serious: Yes (Other)
  Sender: FDA-Public Use
  Company Number: BR-JNJFOC-20131004202

PATIENT
  Sex: Female

DRUGS (1)
  1. TYLEX [Suspect]
     Indication: TOOTHACHE
     Dosage: TWO TABLETS
     Route: 048
     Dates: start: 201310, end: 201310

REACTIONS (4)
  - Foaming at mouth [Recovered/Resolved]
  - Sensory disturbance [Recovered/Resolved]
  - Headache [Not Recovered/Not Resolved]
  - Salivary hypersecretion [Recovered/Resolved]
